FAERS Safety Report 5415252-9 (Version None)
Quarter: 2007Q3

REPORT INFORMATION
  Report Type: 
  Country: None (occurrence: None)
  Receive Date: 20070815
  Receipt Date: 20070803
  Transmission Date: 20080115
  Serious: Yes (Other)
  Sender: FDA-Public Use
  Company Number: CH-ELI_LILLY_AND_COMPANY-CH200706001327

PATIENT
  Age: 70 Year
  Sex: Male
  Weight: 70 kg

DRUGS (5)
  1. CIALIS [Suspect]
     Indication: ERECTILE DYSFUNCTION
     Dosage: 20 MG, UNK
     Route: 048
     Dates: start: 20070505, end: 20070513
  2. GABAPENTIN [Concomitant]
     Indication: NEURALGIA
     Dosage: 400 MG, 4/D
     Route: 048
     Dates: start: 20050101
  3. INHIBACE [Concomitant]
     Indication: HYPERTENSION
     Dosage: 5 MG, DAILY (1/D)
     Route: 048
     Dates: start: 20010101
  4. MAGNESIOCARD [Concomitant]
     Indication: MUSCLE SPASTICITY
     Dosage: 5 MG, 2/D
     Route: 048
     Dates: start: 20030101
  5. ECOFENAC [Concomitant]
     Indication: ARTHRALGIA
     Dosage: 150 MG, AS NEEDED
     Route: 048

REACTIONS (1)
  - RETROGRADE EJACULATION [None]
